FAERS Safety Report 4346288-7 (Version None)
Quarter: 2004Q2

REPORT INFORMATION
  Report Type: 
  Country: None (occurrence: None)
  Receive Date: 20040423
  Receipt Date: 20040423
  Transmission Date: 20050107
  Serious: No
  Sender: FDA-Public Use
  Company Number: None

PATIENT
  Weight: 72.1219 kg

DRUGS (1)
  1. PROVERA 2.5 MG (GENERIC) [Suspect]
     Indication: MENOPAUSE
     Dosage: 2.5 MG QD

REACTIONS (2)
  - PHARMACEUTICAL PRODUCT COMPLAINT [None]
  - THROAT IRRITATION [None]
